FAERS Safety Report 19052121 (Version 2)
Quarter: 2021Q2

REPORT INFORMATION
  Report Type: Spontaneous
  Country: US (occurrence: US)
  Receive Date: 20210324
  Receipt Date: 20210407
  Transmission Date: 20210717
  Serious: No
  Sender: FDA-Public Use
  Company Number: US-STERRX, LLC-2108385

PATIENT
  Age: 77 Year
  Sex: Female
  Weight: 126 kg

DRUGS (1)
  1. DILTIAZEM HCL ? 125MG IN 5% DEXTROSE 125ML CONVENTIONAL IV BAG [Suspect]
     Active Substance: DILTIAZEM HYDROCHLORIDE
     Route: 041

REACTIONS (1)
  - Cellulitis [Recovered/Resolved]
